FAERS Safety Report 24989346 (Version 2)
Quarter: 2025Q2

REPORT INFORMATION
  Report Type: Spontaneous
  Country: US (occurrence: US)
  Receive Date: 20250220
  Receipt Date: 20250522
  Transmission Date: 20250716
  Serious: No
  Sender: MANKIND PHARMA
  Company Number: US-MankindUS-000313

PATIENT
  Age: 68 Year
  Sex: Female
  Weight: 63.5 kg

DRUGS (7)
  1. VARENICLINE TARTRATE [Suspect]
     Active Substance: VARENICLINE TARTRATE
     Indication: Smoking cessation therapy
  2. LOSARTAN [Concomitant]
     Active Substance: LOSARTAN
  3. DULOXETINE [Concomitant]
     Active Substance: DULOXETINE
  4. ATENOLOL [Concomitant]
     Active Substance: ATENOLOL
  5. AMLODIPINE [Concomitant]
     Active Substance: AMLODIPINE BESYLATE
  6. ROSUVASTATIN [Concomitant]
     Active Substance: ROSUVASTATIN
  7. OMEPRAZOLE [Concomitant]
     Active Substance: OMEPRAZOLE

REACTIONS (3)
  - Pruritus [Recovering/Resolving]
  - Product substitution issue [Unknown]
  - Urticaria [Recovered/Resolved]
